FAERS Safety Report 23067383 (Version 1)
Quarter: 2023Q4

REPORT INFORMATION
  Report Type: Report from Study
  Country: JP (occurrence: JP)
  Receive Date: 20231016
  Receipt Date: 20231016
  Transmission Date: 20240110
  Serious: Yes (Death, Other)
  Sender: FDA-Public Use
  Company Number: JP-002147023-NVSC2020JP163220

PATIENT
  Age: 66 Year
  Sex: Male
  Weight: 57.6 kg

DRUGS (7)
  1. CARBOPLATIN [Suspect]
     Active Substance: CARBOPLATIN
     Indication: Product used for unknown indication
     Dosage: 471 MG
     Route: 042
     Dates: start: 20191016
  2. PEMBROLIZUMAB [Suspect]
     Active Substance: PEMBROLIZUMAB
     Indication: Non-small cell lung cancer
     Dosage: 200 MG
     Route: 042
     Dates: start: 20191016, end: 20200501
  3. PEMETREXED [Suspect]
     Active Substance: PEMETREXED
     Indication: Non-small cell lung cancer
     Dosage: 779 MG
     Route: 042
     Dates: start: 20191016
  4. AFLIBERCEPT [Concomitant]
     Active Substance: AFLIBERCEPT
     Indication: Macular degeneration
     Dosage: UNK
     Route: 065
     Dates: start: 20180913
  5. EYLEA [Concomitant]
     Active Substance: AFLIBERCEPT
     Indication: Macular degeneration
     Dosage: UNK
     Route: 065
     Dates: start: 20180913
  6. LEVOFLOXACIN HEMIHYDRATE [Concomitant]
     Active Substance: LEVOFLOXACIN
     Indication: Macular degeneration
     Dosage: UNK
     Route: 065
     Dates: start: 20180913
  7. VITAMINS [Concomitant]
     Active Substance: VITAMINS
     Indication: Chemotherapy side effect prophylaxis
     Dosage: UNK
     Route: 065
     Dates: start: 20191010

REACTIONS (2)
  - Blast crisis in myelogenous leukaemia [Fatal]
  - Second primary malignancy [Fatal]

NARRATIVE: CASE EVENT DATE: 20200610
